FAERS Safety Report 20713887 (Version 1)
Quarter: 2022Q2

REPORT INFORMATION
  Report Type: Spontaneous
  Country: PT (occurrence: None)
  Receive Date: 20220415
  Receipt Date: 20220415
  Transmission Date: 20220721
  Serious: Yes (Life-Threatening, Other)
  Sender: FDA-Public Use
  Company Number: None

PATIENT
  Age: 60 Year
  Sex: Male
  Weight: 90 kg

DRUGS (1)
  1. AMOXICILLIN\CLAVULANIC ACID [Suspect]
     Active Substance: AMOXICILLIN\CLAVULANIC ACID
     Indication: Respiratory tract infection
     Dosage: UNKNOWN
     Route: 042
     Dates: start: 20220324, end: 20220324

REACTIONS (2)
  - Obstructive airways disorder [Recovered/Resolved]
  - Anaphylactic reaction [Recovered/Resolved]

NARRATIVE: CASE EVENT DATE: 20220324
